FAERS Safety Report 6212357-X (Version None)
Quarter: 2009Q2

REPORT INFORMATION
  Report Type: 
  Country: None (occurrence: None)
  Receive Date: 20090529
  Receipt Date: 20090518
  Transmission Date: 20091009
  Serious: No
  Sender: FDA-Public Use
  Company Number: GXKR2009NL05020

PATIENT
  Age: 88 Year
  Sex: Male

DRUGS (7)
  1. METOPROLOL SUCCINATE [Suspect]
     Dosage: 50 MG, QD, ORAL; 25 MG, QD, ORAL; 50 MG, QD, ORAL
     Route: 048
     Dates: start: 20080910
  2. METOPROLOL SUCCINATE [Suspect]
     Dosage: 50 MG, QD, ORAL; 25 MG, QD, ORAL; 50 MG, QD, ORAL
     Route: 048
     Dates: start: 20090309
  3. HYDROCORTISONE (HYDROCORTISONE) CAPSULES, 10MG [Suspect]
     Indication: ADDISON'S DISEASE
     Dosage: PRN, ORAL
     Route: 048
     Dates: start: 20020101
  4. FUROSEMIDE [Suspect]
     Dosage: 1 DF, QD, ORAL
     Route: 048
     Dates: start: 20090215
  5. EUTHYROX (LEVOTHYROXINE SODIUM) TABLET [Concomitant]
  6. PANTOPRAZOLE SODIUM [Concomitant]
  7. PHENPROCOUMON (PHENPROCOUMON) TABLET [Concomitant]

REACTIONS (2)
  - EYE PAIN [None]
  - HALLUCINATION, VISUAL [None]
